FAERS Safety Report 8395968-5 (Version None)
Quarter: 2012Q2

REPORT INFORMATION
  Report Type: 
  Country: None (occurrence: None)
  Receive Date: 20120530
  Receipt Date: 20120525
  Transmission Date: 20120825
  Serious: Yes (Disabling, Other)
  Sender: FDA-Public Use
  Company Number: US-PFIZER INC-2011099029

PATIENT
  Sex: Male

DRUGS (6)
  1. MAXALT [Concomitant]
     Indication: MIGRAINE
     Dosage: 10 MG, UNK
     Dates: start: 20080201
  2. FORMOTEROL [Concomitant]
     Indication: DYSPNOEA
     Dosage: UNK
     Dates: start: 20040101
  3. IBUPROFEN [Concomitant]
     Indication: PAIN MANAGEMENT
     Dosage: 800 MG, UNK
     Dates: start: 20060901
  4. CHANTIX [Suspect]
     Indication: SMOKING CESSATION THERAPY
     Dosage: 1 MG, UNK
     Route: 048
     Dates: start: 20080229, end: 20080601
  5. SOMA [Concomitant]
     Indication: BACK PAIN
     Dosage: 350 MG, UNK
     Dates: start: 20061201, end: 20080801
  6. KLONOPIN [Concomitant]
     Indication: POST-TRAUMATIC STRESS DISORDER
     Dosage: UNK
     Dates: start: 20080201, end: 20080801

REACTIONS (6)
  - ANXIETY [None]
  - DEPRESSION [None]
  - POST-TRAUMATIC STRESS DISORDER [None]
  - SUICIDE ATTEMPT [None]
  - AGGRESSION [None]
  - DELUSION [None]
